FAERS Safety Report 9294400 (Version 3)
Quarter: 2013Q4

REPORT INFORMATION
  Report Type: Spontaneous
  Country: US (occurrence: US)
  Receive Date: 20130517
  Receipt Date: 20131101
  Transmission Date: 20140711
  Serious: Yes (Hospitalization, Other)
  Sender: FDA-Public Use
  Company Number: US-ROCHE-1221751

PATIENT
  Age: 30 Year
  Sex: Female

DRUGS (7)
  1. AVASTIN [Suspect]
     Indication: DIABETIC RETINAL OEDEMA
     Route: 050
  2. AVASTIN [Suspect]
     Indication: OFF LABEL USE
  3. LUCENTIS [Suspect]
     Indication: DIABETIC RETINAL OEDEMA
     Route: 065
  4. MACUGEN [Suspect]
     Indication: DIABETIC RETINAL OEDEMA
     Route: 065
     Dates: start: 20080714
  5. MACUGEN [Suspect]
     Route: 065
     Dates: start: 20080905
  6. TETRACAINE [Concomitant]
  7. POVIDONE IODINE [Concomitant]

REACTIONS (6)
  - Cerebrovascular accident [Recovered/Resolved with Sequelae]
  - Visual impairment [Recovered/Resolved]
  - Adverse drug reaction [Unknown]
  - Migraine [Unknown]
  - Macular oedema [Not Recovered/Not Resolved]
  - Macular oedema [Recovering/Resolving]
